FAERS Safety Report 7987500-2 (Version None)
Quarter: 2011Q4

REPORT INFORMATION
  Report Type: 
  Country: None (occurrence: None)
  Receive Date: 20111216
  Receipt Date: 20111208
  Transmission Date: 20120403
  Serious: Yes (Other)
  Sender: FDA-Public Use
  Company Number: PHHY2011JP108110

PATIENT
  Age: 64 Year
  Sex: Male

DRUGS (2)
  1. YODEL-S [Concomitant]
     Route: 048
  2. TEGRETOL [Suspect]
     Dosage: 200 MG, QHS
     Route: 048

REACTIONS (1)
  - ANURIA [None]
